FAERS Safety Report 21384818 (Version 2)
Quarter: 2022Q3

REPORT INFORMATION
  Report Type: Spontaneous
  Country: US (occurrence: US)
  Receive Date: 20220928
  Receipt Date: 20220929
  Transmission Date: 20221026
  Serious: No
  Sender: FDA-Public Use
  Company Number: US-PFIZER INC-202201188325

PATIENT
  Age: 67 Year
  Sex: Male

DRUGS (2)
  1. DEPO-TESTOSTERONE [Suspect]
     Active Substance: TESTOSTERONE CYPIONATE
     Dosage: UNK, WEEKLY (ONCE A WEEK IN HIS LEG)
     Dates: start: 1985
  2. DEPO-TESTOSTERONE [Suspect]
     Active Substance: TESTOSTERONE CYPIONATE
     Dosage: 100 MG
     Dates: start: 1985

REACTIONS (3)
  - Movement disorder [Unknown]
  - Depressed mood [Unknown]
  - Blood testosterone decreased [Unknown]
